FAERS Safety Report 6439663-8 (Version None)
Quarter: 2009Q4

REPORT INFORMATION
  Report Type: 
  Country: None (occurrence: None)
  Receive Date: 20091113
  Receipt Date: 20091103
  Transmission Date: 20100525
  Serious: Yes (Hospitalization)
  Sender: FDA-Public Use
  Company Number: DE-WYE-H12051809

PATIENT
  Age: 40 Year
  Sex: Male

DRUGS (7)
  1. PANTOZOL [Suspect]
     Indication: REFLUX OESOPHAGITIS
     Route: 048
     Dates: start: 20060101
  2. DOXYCYCLINE [Suspect]
     Indication: LYME DISEASE
     Route: 048
     Dates: start: 20090727, end: 20090819
  3. ALCOHOL [Suspect]
     Dosage: UNKNOWN
  4. PENICILLIN G [Suspect]
     Indication: LYME DISEASE
     Dosage: UNKNOWN
     Route: 048
     Dates: start: 20090720, end: 20090726
  5. TERBINAFINE HCL [Suspect]
     Indication: FUNGAL INFECTION
     Route: 048
     Dates: start: 20090701, end: 20090720
  6. CEFUROXIME [Suspect]
     Indication: LYME DISEASE
     Route: 048
     Dates: start: 20090812, end: 20090823
  7. EXFORGE [Suspect]
     Indication: HYPERTENSION
     Route: 048
     Dates: start: 20090401

REACTIONS (10)
  - ALCOHOL INTERACTION [None]
  - ASTHENIA [None]
  - GENERAL PHYSICAL HEALTH DETERIORATION [None]
  - HEPATIC ENZYME INCREASED [None]
  - HEPATIC FIBROSIS [None]
  - HEPATIC STEATOSIS [None]
  - HEPATOMEGALY [None]
  - HEPATOTOXICITY [None]
  - PORTAL HYPERTENSIVE GASTROPATHY [None]
  - TREMOR [None]
